FAERS Safety Report 17312547 (Version 1)
Quarter: 2020Q1

REPORT INFORMATION
  Report Type: Spontaneous
  Country: GB (occurrence: GB)
  Receive Date: 20200123
  Receipt Date: 20200123
  Transmission Date: 20200409
  Serious: Yes (Life-Threatening, Other)
  Sender: FDA-Public Use
  Company Number: GB-GILEAD-2020-0446208

PATIENT
  Age: 69 Year
  Sex: Female
  Weight: 78 kg

DRUGS (7)
  1. ESTRADIOL. [Concomitant]
     Active Substance: ESTRADIOL
  2. AMLODIPINE [Concomitant]
     Active Substance: AMLODIPINE BESYLATE
     Dosage: 5 MG
  3. HYDROXYCHLOROQUINE [Concomitant]
     Active Substance: HYDROXYCHLOROQUINE
     Dosage: 200 MG
  4. RANEXA [Suspect]
     Active Substance: RANOLAZINE
     Indication: PRINZMETAL ANGINA
     Dosage: PRESCRIBED ONE TABLET TWICE DAILY, BUT STARTED ON ONE TABLET, ONCE DAILY DUE TO PREVIOUS SENSITIVITY
     Route: 048
     Dates: start: 20191123, end: 20191127
  5. PROGESTERONE. [Concomitant]
     Active Substance: PROGESTERONE
  6. RANEXA [Suspect]
     Active Substance: RANOLAZINE
     Dosage: PRESCRIBED ONE TABLET TWICE DAILY, BUT STARTED ON ONE TABLET, ONCE DAILY DUE TO PREVIOUS SENSITIVITY
     Route: 048
     Dates: start: 20191123, end: 20191127
  7. ISOSORBIDE MONONITRATE. [Concomitant]
     Active Substance: ISOSORBIDE MONONITRATE
     Dosage: 20 MG

REACTIONS (3)
  - Nightmare [Recovered/Resolved with Sequelae]
  - Incorrect dose administered [Recovered/Resolved]
  - Angioedema [Recovering/Resolving]

NARRATIVE: CASE EVENT DATE: 20191123
